FAERS Safety Report 8935402 (Version 1)
Quarter: 2012Q4

REPORT INFORMATION
  Report Type: 
  Country: US (occurrence: None)
  Receive Date: 20121127
  Receipt Date: 20121127
  Transmission Date: 20130627
  Serious: Yes (Hospitalization)
  Sender: FDA-Public Use
  Company Number: None

PATIENT
  Sex: Female
  Weight: 67.1 kg

DRUGS (10)
  1. CYTARABINE [Suspect]
     Dates: end: 20121009
  2. MITOXANTRONE HYDROCHLORIDE [Suspect]
     Dates: end: 20121012
  3. TRETINOIN [Suspect]
     Dates: end: 20121022
  4. ACETAMINOPHEN [Concomitant]
  5. ACETOMINOPHEN-HYDROCODONE [Concomitant]
  6. CEFTRIAXONE [Concomitant]
  7. ONDANSETRON [Concomitant]
  8. OXYCODONE [Concomitant]
  9. TRIMETHOPRIM-SULFAMETHOXAZOLE DS [Concomitant]
  10. ZANTAC [Concomitant]

REACTIONS (2)
  - Febrile neutropenia [None]
  - Pneumococcal sepsis [None]
